FAERS Safety Report 24975014 (Version 1)
Quarter: 2025Q1

REPORT INFORMATION
  Report Type: Spontaneous
  Country: GB (occurrence: GB)
  Receive Date: 20250217
  Receipt Date: 20250217
  Transmission Date: 20250409
  Serious: Yes (Other)
  Sender: CELLTRION
  Company Number: GB-CELLTRION INC.-2025GB004302

PATIENT

DRUGS (2)
  1. YUFLYMA [Suspect]
     Active Substance: ADALIMUMAB-AATY
     Indication: Psoriatic arthropathy
     Route: 058
     Dates: start: 202501
  2. YUFLYMA [Suspect]
     Active Substance: ADALIMUMAB-AATY
     Route: 058
     Dates: start: 20250203

REACTIONS (1)
  - Psoriatic arthropathy [Unknown]
